FAERS Safety Report 9897830 (Version 1)
Quarter: 2014Q1

REPORT INFORMATION
  Report Type: Spontaneous
  Country: DE (occurrence: DE)
  Receive Date: 20140214
  Receipt Date: 20140214
  Transmission Date: 20141002
  Serious: Yes (Congenital Anomaly, Other)
  Sender: FDA-Public Use
  Company Number: DE-DRREDDYS-GER/GER/14/0038080

PATIENT
  Age: 1 Day
  Sex: Female
  Weight: 1.73 kg

DRUGS (3)
  1. LAMOTRIGINE [Suspect]
     Indication: PRODUCT USED FOR UNKNOWN INDICATION
     Route: 064
     Dates: start: 20111231
  2. LAMOTRIGINE [Suspect]
     Route: 064
  3. LAMOTRIGINE [Suspect]
     Route: 064
     Dates: end: 20120828

REACTIONS (9)
  - Congenital anaemia [Unknown]
  - Hydrops foetalis [Recovered/Resolved]
  - Pneumocystis jirovecii pneumonia [Recovered/Resolved]
  - Ventricular septal defect [Recovered/Resolved]
  - Atrial septal defect [Unknown]
  - Combined immunodeficiency [Not Recovered/Not Resolved]
  - Foetal growth restriction [Unknown]
  - Premature baby [Unknown]
  - Foetal exposure during pregnancy [Unknown]
